FAERS Safety Report 21161606 (Version 1)
Quarter: 2022Q3

REPORT INFORMATION
  Report Type: Spontaneous
  Country: US (occurrence: US)
  Receive Date: 20220802
  Receipt Date: 20220802
  Transmission Date: 20221027
  Serious: No
  Sender: FDA-Public Use
  Company Number: US-ARIS GLOBAL-POI1255202200134

PATIENT
  Sex: Female

DRUGS (1)
  1. UPNEEQ [Suspect]
     Active Substance: OXYMETAZOLINE HYDROCHLORIDE
     Indication: Product used for unknown indication
     Dosage: OU
     Route: 047
     Dates: start: 202204, end: 202204

REACTIONS (5)
  - Nausea [Recovered/Resolved]
  - Asthenopia [Recovered/Resolved]
  - Head discomfort [Recovered/Resolved]
  - Dry eye [Recovered/Resolved]
  - Excessive eye blinking [Recovered/Resolved]

NARRATIVE: CASE EVENT DATE: 20220401
